FAERS Safety Report 5583265-2 (Version None)
Quarter: 2008Q1

REPORT INFORMATION
  Report Type: 
  Country: None (occurrence: None)
  Receive Date: 20080107
  Receipt Date: 20071226
  Transmission Date: 20080703
  Serious: Yes (Other)
  Sender: FDA-Public Use
  Company Number: US-ELI_LILLY_AND_COMPANY-US200711002151

PATIENT
  Age: 16 Year
  Sex: Female

DRUGS (2)
  1. STRATTERA [Suspect]
  2. PROZAC [Concomitant]
     Dosage: 20 MG, DAILY (1/D)

REACTIONS (1)
  - HEPATIC ENZYME ABNORMAL [None]
